FAERS Safety Report 7436855-6 (Version None)
Quarter: 2011Q2

REPORT INFORMATION
  Report Type: 
  Country: None (occurrence: None)
  Receive Date: 20110426
  Receipt Date: 20110422
  Transmission Date: 20111010
  Serious: No
  Sender: FDA-Public Use
  Company Number: US-PFIZER INC-2011011190

PATIENT
  Sex: Female

DRUGS (2)
  1. PRISTIQ [Suspect]
     Indication: DEPRESSION
     Dosage: 50 MG, UNK
  2. PREMPRO [Concomitant]
     Dosage: UNK

REACTIONS (3)
  - NAUSEA [None]
  - DIZZINESS [None]
  - BLOOD CHOLESTEROL INCREASED [None]
